FAERS Safety Report 6942826-6 (Version None)
Quarter: 2010Q3

REPORT INFORMATION
  Report Type: 
  Country: None (occurrence: None)
  Receive Date: 20100823
  Receipt Date: 20100811
  Transmission Date: 20110219
  Serious: Yes (Other)
  Sender: FDA-Public Use
  Company Number: 2010VX001276

PATIENT
  Sex: Female

DRUGS (3)
  1. DIHYDROERGOTAMINE MESYLATE (DIHYDROERGOTAMINE MESYLATE) [Suspect]
     Indication: PRODUCT USED FOR UNKNOWN INDICATION
  2. BETAHISTINE (BETAHISTINE) [Suspect]
     Indication: PRODUCT USED FOR UNKNOWN INDICATION
  3. CAFFEINE (CAFFEINE) [Suspect]
     Indication: PRODUCT USED FOR UNKNOWN INDICATION

REACTIONS (1)
  - DRUG EXPOSURE DURING PREGNANCY [None]
